FAERS Safety Report 8585963-5 (Version None)
Quarter: 2012Q3

REPORT INFORMATION
  Report Type: 
  Country: None (occurrence: None)
  Receive Date: 20120810
  Receipt Date: 20120727
  Transmission Date: 20120928
  Serious: Yes (Hospitalization)
  Sender: FDA-Public Use
  Company Number: DE-ROCHE-1074693

PATIENT
  Sex: Female
  Weight: 61 kg

DRUGS (5)
  1. DOXORUBICIN HCL [Suspect]
     Indication: BREAST CANCER
     Dosage: DRUG USED: NON PEGYLATED LIPOSOMAL DOXORUBICIN, LAST DOSE PRIOR SAE 30/MAY/2012
     Route: 042
     Dates: start: 20120312
  2. HERCEPTIN [Suspect]
     Indication: BREAST CANCER
     Dosage: LAST DOSE PRIOR TO SAE 21/MAY/2012
     Route: 042
     Dates: start: 20120312
  3. PACLITAXEL [Suspect]
     Indication: BREAST CANCER
     Dosage: LAST DOSE PRIOR TO SAE 30/MAY/2012
     Route: 042
     Dates: start: 20120312
  4. HERCEPTIN [Suspect]
     Dosage: LAST DOSE PRIOR TO SAE 21/MAY/2012, 366 MG
     Route: 042
  5. LAPATINIB [Suspect]
     Indication: BREAST CANCER
     Dosage: LAST DOSE PRIOR TO SAE :31/MAY/2012
     Route: 048
     Dates: start: 20120312

REACTIONS (3)
  - PYREXIA [None]
  - HYPOCALCAEMIA [None]
  - HYPOKALAEMIA [None]
